FAERS Safety Report 25245454 (Version 1)
Quarter: 2025Q2

REPORT INFORMATION
  Report Type: Spontaneous
  Country: US (occurrence: None)
  Receive Date: 20250425
  Receipt Date: 20250425
  Transmission Date: 20250717
  Serious: Yes (unspecified)
  Sender: FDA-CTU
  Company Number: None

PATIENT
  Age: 63 Year
  Sex: Female

DRUGS (1)
  1. LENALIDOMIDE [Suspect]
     Active Substance: LENALIDOMIDE
     Indication: Plasma cell myeloma
     Dosage: FREQUENCY : DAILY;?

REACTIONS (1)
  - Thrombosis [None]
